FAERS Safety Report 12224930 (Version 1)
Quarter: 2016Q1

REPORT INFORMATION
  Report Type: Spontaneous
  Country: US (occurrence: US)
  Receive Date: 20160331
  Receipt Date: 20160331
  Transmission Date: 20160526
  Serious: No
  Sender: FDA-Public Use
  Company Number: US-PFIZER INC-2016164917

PATIENT
  Age: 92 Year
  Sex: Female

DRUGS (1)
  1. LYRICA [Suspect]
     Active Substance: PREGABALIN
     Indication: PAIN
     Dosage: 25 MG, UNK

REACTIONS (5)
  - Irritability [Unknown]
  - Drug ineffective [Unknown]
  - Somnolence [Unknown]
  - Herpes zoster [Unknown]
  - Intentional product use issue [Unknown]
